FAERS Safety Report 9398458 (Version 2)
Quarter: 2014Q1

REPORT INFORMATION
  Report Type: Spontaneous
  Country: FR (occurrence: None)
  Receive Date: 20130709
  Receipt Date: 20140102
  Transmission Date: 20141002
  Serious: Yes (Hospitalization)
  Sender: FDA-Public Use
  Company Number: AUR-APL-2013-05786

PATIENT
  Age: 83 Year
  Sex: Male

DRUGS (6)
  1. BISOPROLOL (BISOPROLOL) [Suspect]
     Indication: PRODUCT USED FOR UNKNOWN INDICATION
     Dosage: 10 MG, 1 D), ORAL
     Route: 048
     Dates: start: 201303
  2. TRIATEC [Suspect]
     Indication: PRODUCT USED FOR UNKNOWN INDICATION
     Dosage: 2.5 MG, 1 D), ORAL
     Route: 048
  3. DIOSMIN (DIOSMIN) [Suspect]
     Indication: PRODUCT USED FOR UNKNOWN INDICATION
     Dosage: 600 MG, 1 D, ORAL
     Route: 048
  4. LODALES [Suspect]
     Indication: PRODUCT USED FOR UNKNOWN INDICATION
     Route: 048
     Dates: start: 201303
  5. KARDEGIC (ACETYLSALICYLATE LYSINE) [Suspect]
     Indication: PRODUCT USED FOR UNKNOWN INDICATION
     Route: 048
  6. PREVISCAN [Suspect]
     Indication: PRODUCT USED FOR UNKNOWN INDICATION
     Route: 048

REACTIONS (16)
  - Pleural effusion [None]
  - Chlamydia test positive [None]
  - Atelectasis [None]
  - Raynaud^s phenomenon [None]
  - Sjogren^s syndrome [None]
  - Sjogren^s syndrome [None]
  - Respiratory tract infection [None]
  - Pulmonary fibrosis [None]
  - Rales [None]
  - Dyspnoea exertional [None]
  - Lymphadenopathy mediastinal [None]
  - Pulmonary mass [None]
  - Antinuclear antibody positive [None]
  - Condition aggravated [None]
  - Alveolitis [None]
  - Alveolitis allergic [None]
